FAERS Safety Report 7481184-8 (Version None)
Quarter: 2011Q2

REPORT INFORMATION
  Report Type: 
  Country: None (occurrence: None)
  Receive Date: 20110516
  Receipt Date: 20110509
  Transmission Date: 20111010
  Serious: Yes (Hospitalization, Other)
  Sender: FDA-Public Use
  Company Number: ES-CELGENEUS-144-C5013-11031049

PATIENT
  Sex: Female
  Weight: 64 kg

DRUGS (8)
  1. BROMAZEPAM [Concomitant]
     Dosage: 345 MILLIGRAM
     Route: 048
     Dates: start: 20101013
  2. METAMIZOLE [Concomitant]
     Indication: BACK PAIN
     Dosage: 1725 MILLIGRAM
     Route: 048
     Dates: start: 20101115
  3. LENALIDOMIDE [Suspect]
     Dosage: 25 MILLIGRAM
     Route: 048
     Dates: start: 20110217, end: 20110303
  4. DEXAMETHASONE [Suspect]
     Indication: MULTIPLE MYELOMA
     Dosage: 20 MILLIGRAM
     Route: 065
     Dates: start: 20101124
  5. ENOXAPARIN SODIUM [Concomitant]
     Indication: THROMBOSIS PROPHYLAXIS
     Dosage: 240 MILLIGRAM
     Route: 058
     Dates: start: 20101210
  6. LENALIDOMIDE [Suspect]
     Indication: MULTIPLE MYELOMA
     Dosage: 25 MILLIGRAM
     Route: 048
     Dates: start: 20101124
  7. DEXAMETHASONE [Suspect]
     Dosage: 20 MILLIGRAM
     Route: 065
     Dates: start: 20110217, end: 20110225
  8. ACETAMINOPHEN [Concomitant]
     Indication: BACK PAIN
     Dosage: 3 GRAM
     Route: 048
     Dates: start: 20101013

REACTIONS (1)
  - COLON CANCER METASTATIC [None]
